FAERS Safety Report 12321231 (Version 3)
Quarter: 2017Q1

REPORT INFORMATION
  Report Type: Spontaneous
  Country: JP (occurrence: JP)
  Receive Date: 20160502
  Receipt Date: 20170324
  Transmission Date: 20170428
  Serious: Yes (Hospitalization)
  Sender: FDA-Public Use
  Company Number: JP-ORION CORPORATION ORION PHARMA-ENT 2016-0062

PATIENT
  Age: 65 Year
  Sex: Female

DRUGS (9)
  1. ROTIGOTINE [Concomitant]
     Active Substance: ROTIGOTINE
     Route: 065
     Dates: start: 201504
  2. CABERGOLINE. [Concomitant]
     Active Substance: CABERGOLINE
     Route: 065
     Dates: start: 201506
  3. ROPINIROLE. [Concomitant]
     Active Substance: ROPINIROLE
     Route: 065
  4. COMTAN [Suspect]
     Active Substance: ENTACAPONE
     Indication: PARKINSON^S DISEASE
     Route: 048
     Dates: start: 201107, end: 201507
  5. LEVODOPA-CARBIDOPA [Suspect]
     Active Substance: CARBIDOPA\LEVODOPA
     Route: 048
     Dates: start: 201409, end: 201501
  6. LEVODOPA-CARBIDOPA [Suspect]
     Active Substance: CARBIDOPA\LEVODOPA
     Route: 048
     Dates: start: 201501, end: 201602
  7. SELEGILINE [Concomitant]
     Active Substance: SELEGILINE
     Route: 065
     Dates: start: 201207, end: 201410
  8. LEVODOPA-CARBIDOPA [Suspect]
     Active Substance: CARBIDOPA\LEVODOPA
     Route: 048
     Dates: start: 200908, end: 201311
  9. LEVODOPA-CARBIDOPA [Suspect]
     Active Substance: CARBIDOPA\LEVODOPA
     Route: 048
     Dates: start: 201311, end: 201409

REACTIONS (5)
  - Dyskinesia [Recovered/Resolved]
  - Decreased appetite [Recovered/Resolved]
  - Parkinson^s disease [Recovering/Resolving]
  - Nausea [Recovered/Resolved]
  - Nocturia [Recovered/Resolved]

NARRATIVE: CASE EVENT DATE: 2013
